FAERS Safety Report 12460290 (Version 1)
Quarter: 2016Q2

REPORT INFORMATION
  Report Type: Spontaneous
  Country: JP (occurrence: JP)
  Receive Date: 20160613
  Receipt Date: 20160613
  Transmission Date: 20160815
  Serious: Yes (Death, Other)
  Sender: FDA-Public Use
  Company Number: JP-MDT-ADR-2016-01063

PATIENT
  Age: 47 Year
  Sex: Male

DRUGS (1)
  1. GABALON [Suspect]
     Active Substance: BACLOFEN
     Route: 037

REACTIONS (2)
  - Cardio-respiratory arrest [Fatal]
  - Acute left ventricular failure [Fatal]

NARRATIVE: CASE EVENT DATE: 20160403
